FAERS Safety Report 13601065 (Version 1)
Quarter: 2017Q2

REPORT INFORMATION
  Report Type: Spontaneous
  Country: US (occurrence: US)
  Receive Date: 20170601
  Receipt Date: 20170601
  Transmission Date: 20170830
  Serious: No
  Sender: FDA-Public Use
  Company Number: US-009507513-1705USA005112

PATIENT
  Sex: Female

DRUGS (1)
  1. NEXPLANON [Suspect]
     Active Substance: ETONOGESTREL
     Indication: PRODUCT USED FOR UNKNOWN INDICATION
     Dosage: ONE INSERTION
     Route: 059
     Dates: start: 201701, end: 20170505

REACTIONS (3)
  - Weight increased [Unknown]
  - Vaginal haemorrhage [Unknown]
  - Mood altered [Unknown]

NARRATIVE: CASE EVENT DATE: 2017
